FAERS Safety Report 17885342 (Version 2)
Quarter: 2020Q3

REPORT INFORMATION
  Report Type: Spontaneous
  Country: CA (occurrence: CA)
  Receive Date: 20200611
  Receipt Date: 20200707
  Transmission Date: 20201103
  Serious: Yes (Other)
  Sender: FDA-Public Use
  Company Number: CA-PFIZER INC-2020225805

PATIENT
  Age: 42 Year
  Sex: Female

DRUGS (6)
  1. ONDASETRON [ONDANSETRON] [Concomitant]
     Dosage: UNK
  2. OXYCODONE [Concomitant]
     Active Substance: OXYCODONE
     Dosage: UNK
  3. LEUPROLIDE ACETATE. [Concomitant]
     Active Substance: LEUPROLIDE ACETATE
     Dosage: UNK
  4. DEXAMETHASONE. [Concomitant]
     Active Substance: DEXAMETHASONE
     Dosage: UNK
  5. SYNTHROID [Concomitant]
     Active Substance: LEVOTHYROXINE SODIUM
     Dosage: UNK
  6. IBRANCE [Suspect]
     Active Substance: PALBOCICLIB
     Dosage: 125 MG (1DF), DAILY FOR 21 DAYS THEN OFF FOR 7 DAYS
     Route: 048
     Dates: start: 20200522

REACTIONS (2)
  - Hepatic failure [Unknown]
  - Neoplasm progression [Unknown]
